FAERS Safety Report 6876690-0 (Version None)
Quarter: 2010Q3

REPORT INFORMATION
  Report Type: 
  Country: None (occurrence: None)
  Receive Date: 20100727
  Receipt Date: 20100713
  Transmission Date: 20110219
  Serious: Yes (Hospitalization)
  Sender: FDA-Public Use
  Company Number: JP-MYLANLABS-2010S1012422

PATIENT
  Age: 85 Year
  Sex: Female
  Weight: 40 kg

DRUGS (1)
  1. ETODOLAC [Suspect]
     Indication: ARTHRALGIA
     Route: 048

REACTIONS (2)
  - BRADYCARDIA [None]
  - HYPERKALAEMIA [None]
